FAERS Safety Report 4927418-2 (Version None)
Quarter: 2006Q1

REPORT INFORMATION
  Report Type: 
  Country: None (occurrence: None)
  Receive Date: 20060228
  Receipt Date: 20051214
  Transmission Date: 20060701
  Serious: No
  Sender: FDA-Public Use
  Company Number: US-GLAXOSMITHKLINE-A0585872A

PATIENT
  Age: 46 Year
  Sex: Female

DRUGS (1)
  1. IMITREX [Suspect]
     Indication: MIGRAINE
     Route: 058
     Dates: start: 20051203, end: 20051203

REACTIONS (5)
  - ASTHENIA [None]
  - DIZZINESS [None]
  - MOBILITY DECREASED [None]
  - NAUSEA [None]
  - VOMITING [None]
